FAERS Safety Report 7044950-9 (Version None)
Quarter: 2010Q4

REPORT INFORMATION
  Report Type: 
  Country: None (occurrence: None)
  Receive Date: 20101014
  Receipt Date: 20101006
  Transmission Date: 20110411
  Serious: Yes (Other)
  Sender: FDA-Public Use
  Company Number: PHHY2010BR66790

PATIENT
  Sex: Female
  Weight: 78 kg

DRUGS (3)
  1. STALEVO 100 [Suspect]
     Indication: PARKINSON'S DISEASE
     Dosage: 100/25/200 MG FIVE TABLET DAILY WITH 150/37.5/200MG 01 TABLET FIVE TABLETS DAILY
     Dates: start: 20090101
  2. STALEVO 100 [Suspect]
     Dosage: 100/25/200 MG FOUR TIMES DAILY WITH 150/37.5/200MG 01 TABLET FOUR TIMES DAILY
  3. STALEVO 100 [Suspect]
     Dosage: 150/37.5/200MG 01 TABLET FOUR TIMES DAILY

REACTIONS (3)
  - DEEP BRAIN STIMULATION [None]
  - DRUG INEFFECTIVE [None]
  - DYSKINESIA [None]
